FAERS Safety Report 7421877-1 (Version None)
Quarter: 2011Q2

REPORT INFORMATION
  Report Type: 
  Country: None (occurrence: None)
  Receive Date: 20110418
  Receipt Date: 20110407
  Transmission Date: 20111010
  Serious: Yes (Other)
  Sender: FDA-Public Use
  Company Number: US-CEPHALON-2009011664

PATIENT
  Sex: Female
  Weight: 82 kg

DRUGS (6)
  1. PROVIGIL [Suspect]
     Indication: SLEEP APNOEA SYNDROME
     Route: 048
     Dates: start: 20080101
  2. SYNTHROID [Concomitant]
  3. CYMBALTA [Suspect]
     Indication: FIBROMYALGIA
     Route: 048
     Dates: start: 20091016
  4. CYMBALTA [Suspect]
     Indication: DEPRESSION
  5. OXYCONTIN [Concomitant]
  6. FLU SHOT [Suspect]
     Dates: start: 20091015, end: 20091015

REACTIONS (3)
  - DRUG INTERACTION [None]
  - VOMITING PROJECTILE [None]
  - UPPER LIMB FRACTURE [None]
